FAERS Safety Report 9165139 (Version 3)
Quarter: 2014Q2

REPORT INFORMATION
  Report Type: Spontaneous
  Country: JP (occurrence: None)
  Receive Date: 20130228
  Receipt Date: 20140417
  Transmission Date: 20141212
  Serious: Yes (Hospitalization)
  Sender: FDA-Public Use
  Company Number: SYM-2013-00930

PATIENT
  Age: 30 Year
  Sex: Female

DRUGS (15)
  1. FLUOROURACIL [Suspect]
     Indication: METASTATIC GASTRIC CANCER
     Route: 042
     Dates: start: 20110901, end: 20111116
  2. FLUOROURACIL [Suspect]
     Indication: LUNG NEOPLASM MALIGNANT
     Route: 042
     Dates: start: 20110901, end: 20111116
  3. FLUOROURACIL [Suspect]
     Indication: DISSEMINATED INTRAVASCULAR COAGULATION
     Route: 042
     Dates: start: 20110901, end: 20111116
  4. LEUCOVORIN [Suspect]
     Indication: METASTATIC GASTRIC CANCER
     Dates: start: 20110901
  5. LEUCOVORIN [Suspect]
     Indication: LUNG NEOPLASM MALIGNANT
     Dates: start: 20110901
  6. LEUCOVORIN [Suspect]
     Indication: DISSEMINATED INTRAVASCULAR COAGULATION
     Dates: start: 20110901
  7. CISPLATIN [Suspect]
     Indication: METASTATIC GASTRIC CANCER
     Route: 041
     Dates: start: 20110901, end: 20111116
  8. CISPLATIN [Suspect]
     Indication: LUNG NEOPLASM MALIGNANT
     Route: 041
     Dates: start: 20110901, end: 20111116
  9. CISPLATIN [Suspect]
     Indication: DISSEMINATED INTRAVASCULAR COAGULATION
     Route: 041
     Dates: start: 20110901, end: 20111116
  10. GIMERACIL/OTERACIL POTASSIUM/TEGAFUR(GIMERACIL W/OTERACIL POTASSIUM/TEGAFUR)(UNKNOWN)(OTERACILI POTASSIUM, TEGAFUR, GIMERACIL) [Concomitant]
  11. TAXOTERE [Suspect]
     Indication: METASTATIC GASTRIC CANCER
     Route: 042
     Dates: start: 20110901, end: 20111116
  12. TAXOTERE [Suspect]
     Indication: LUNG NEOPLASM MALIGNANT
     Route: 042
     Dates: start: 20110901, end: 20111116
  13. TAXOTERE [Suspect]
     Indication: DISSEMINATED INTRAVASCULAR COAGULATION
     Route: 042
     Dates: start: 20110901, end: 20111116
  14. GRANISETRON (GRANISETRON) (UNKNOWN) (GRANISETRON) [Concomitant]
  15. ALOXI (PALONOSETRON HYDROCHLORIDE) (PALONOSETRON HYDROCHLORIDE) [Concomitant]

REACTIONS (3)
  - Stomatitis [None]
  - Neutrophil count decreased [None]
  - Nausea [None]
